FAERS Safety Report 10629386 (Version 1)
Quarter: 2014Q4

REPORT INFORMATION
  Report Type: Spontaneous
  Country: US (occurrence: US)
  Receive Date: 20141205
  Receipt Date: 20141205
  Transmission Date: 20150529
  Serious: No
  Sender: FDA-Public Use
  Company Number: US-BRISTOL-MYERS SQUIBB COMPANY-21206537

PATIENT
  Age: 55 Year
  Sex: Male

DRUGS (1)
  1. SPRYCEL [Suspect]
     Active Substance: DASATINIB
     Dosage: SPRYCEL 20MG, 2 TABLETS
     Dates: start: 20130808

REACTIONS (4)
  - Fatigue [Unknown]
  - Decreased appetite [Unknown]
  - Drug dose omission [Unknown]
  - Asthenia [Unknown]
